FAERS Safety Report 6657708-7 (Version None)
Quarter: 2010Q1

REPORT INFORMATION
  Report Type: 
  Country: None (occurrence: None)
  Receive Date: 20100319
  Receipt Date: 20090207
  Transmission Date: 20100710
  Serious: Yes (Other)
  Sender: FDA-Public Use
  Company Number: 2009SP002987

PATIENT
  Sex: Female

DRUGS (2)
  1. PEG-INTRON [Suspect]
     Indication: HEPATITIS C
     Dosage: 80 MG; QW; SC
     Route: 058
  2. RIBASPHERE [Concomitant]

REACTIONS (2)
  - CONVULSION [None]
  - OVERDOSE [None]
